FAERS Safety Report 20263955 (Version 3)
Quarter: 2022Q1

REPORT INFORMATION
  Report Type: Report from Study
  Country: AR (occurrence: AR)
  Receive Date: 20211231
  Receipt Date: 20220209
  Transmission Date: 20220423
  Serious: Yes (Other)
  Sender: FDA-Public Use
  Company Number: AR-NOVARTISPH-NVSC2021AR297307

PATIENT
  Age: 66 Year
  Sex: Female

DRUGS (5)
  1. COSENTYX [Suspect]
     Active Substance: SECUKINUMAB
     Indication: Psoriatic arthropathy
     Dosage: 150 MG, QMO
     Route: 058
     Dates: start: 20180702
  2. VALSARTAN [Concomitant]
     Active Substance: VALSARTAN
     Indication: Product used for unknown indication
     Dosage: 80 MG, BID
     Route: 048
  3. CLONAGIN [Concomitant]
     Indication: Product used for unknown indication
     Dosage: 0.5 DOSAGE FORM, AT NIGHT
     Route: 065
  4. MINUSLIP [Concomitant]
     Indication: Product used for unknown indication
     Dosage: UNK
     Route: 065
  5. ROSUVASTATIN [Concomitant]
     Active Substance: ROSUVASTATIN
     Indication: Product used for unknown indication
     Dosage: UNK
     Route: 065

REACTIONS (7)
  - Cholelithiasis [Unknown]
  - Pain [Unknown]
  - Cholecystitis infective [Unknown]
  - Blood uric acid increased [Unknown]
  - Abdominal pain [Unknown]
  - Hepatic steatosis [Unknown]
  - Hepatic pain [Unknown]

NARRATIVE: CASE EVENT DATE: 20190111
